FAERS Safety Report 12944116 (Version 1)
Quarter: 2016Q4

REPORT INFORMATION
  Report Type: Spontaneous
  Country: US (occurrence: US)
  Receive Date: 20161115
  Receipt Date: 20161115
  Transmission Date: 20170207
  Serious: No
  Sender: FDA-Public Use
  Company Number: US-ROCHE-1827884

PATIENT
  Age: 47 Year
  Sex: Female

DRUGS (5)
  1. XELODA [Suspect]
     Active Substance: CAPECITABINE
     Indication: INFLAMMATORY CARCINOMA OF BREAST STAGE IV
     Route: 065
  2. CARBOPLATIN. [Concomitant]
     Active Substance: CARBOPLATIN
     Indication: INFLAMMATORY CARCINOMA OF BREAST STAGE IV
  3. HERCEPTIN [Suspect]
     Active Substance: TRASTUZUMAB
     Indication: INFLAMMATORY CARCINOMA OF BREAST STAGE IV
     Route: 042
  4. PERJETA [Suspect]
     Active Substance: PERTUZUMAB
     Indication: INFLAMMATORY CARCINOMA OF BREAST STAGE IV
     Route: 065
  5. KADCYLA [Suspect]
     Active Substance: ADO-TRASTUZUMAB EMTANSINE
     Indication: INFLAMMATORY CARCINOMA OF BREAST STAGE IV
     Route: 065

REACTIONS (1)
  - HER-2 positive breast cancer [Not Recovered/Not Resolved]
